FAERS Safety Report 19596775 (Version 1)
Quarter: 2021Q3

REPORT INFORMATION
  Report Type: Report from Study
  Country: SK (occurrence: SK)
  Receive Date: 20210722
  Receipt Date: 20210722
  Transmission Date: 20211014
  Serious: Yes (Death, Other)
  Sender: FDA-Public Use
  Company Number: SK-JNJFOC-20210738213

PATIENT

DRUGS (1)
  1. REMICADE [Suspect]
     Active Substance: INFLIXIMAB
     Indication: INFLAMMATORY BOWEL DISEASE
     Route: 042

REACTIONS (15)
  - Oral herpes [Unknown]
  - Clostridium difficile infection [Unknown]
  - Lung adenocarcinoma [Unknown]
  - Lung cancer metastatic [Unknown]
  - Basal cell carcinoma [Unknown]
  - Renal disorder [Unknown]
  - Peptic ulcer perforation [Fatal]
  - Eczema [Unknown]
  - Hypersensitivity [Unknown]
  - Anaphylactic reaction [Unknown]
  - Drug ineffective [Unknown]
  - Septic shock [Fatal]
  - Staphylococcal skin infection [Unknown]
  - Renal cancer [Unknown]
  - Tuberculosis [Unknown]
